FAERS Safety Report 6419758-5 (Version None)
Quarter: 2009Q4

REPORT INFORMATION
  Report Type: 
  Country: None (occurrence: None)
  Receive Date: 20091029
  Receipt Date: 20091021
  Transmission Date: 20100525
  Serious: Yes (Other)
  Sender: FDA-Public Use
  Company Number: US-JNJFOC-20091007344

PATIENT
  Sex: Male
  Weight: 127.46 kg

DRUGS (7)
  1. REMICADE [Suspect]
     Indication: RHEUMATOID ARTHRITIS
     Route: 042
     Dates: start: 20090101
  2. PLAVIX [Concomitant]
  3. ASPIRIN [Concomitant]
  4. LIPITOR [Concomitant]
  5. ZETIA [Concomitant]
  6. IBUPROFEN [Concomitant]
  7. METOPROLOL [Concomitant]

REACTIONS (4)
  - DERMATITIS [None]
  - DRY EYE [None]
  - DRY MOUTH [None]
  - WEIGHT INCREASED [None]
